FAERS Safety Report 4875559-0 (Version None)
Quarter: 2005Q4

REPORT INFORMATION
  Report Type: 
  Country: None (occurrence: None)
  Receive Date: 20051205
  Receipt Date: 20050622
  Transmission Date: 20060501
  Serious: Yes (Hospitalization)
  Sender: FDA-Public Use
  Company Number: 2005-129744-NL

PATIENT
  Age: 35 Year
  Sex: Female
  Weight: 63.6 kg

DRUGS (4)
  1. NUVARING [Suspect]
     Indication: CONTRACEPTION
     Route: 067
     Dates: start: 20050401, end: 20050601
  2. PROZAC [Concomitant]
  3. TOPAMAX [Concomitant]
  4. MINOCYCLINE HCL [Concomitant]

REACTIONS (2)
  - DEEP VEIN THROMBOSIS [None]
  - PULMONARY EMBOLISM [None]
